FAERS Safety Report 4640180-6 (Version None)
Quarter: 2005Q2

REPORT INFORMATION
  Report Type: 
  Country: None (occurrence: None)
  Receive Date: 20050419
  Receipt Date: 20050418
  Transmission Date: 20051028
  Serious: Yes (Other)
  Sender: FDA-Public Use
  Company Number: USA-2004-0016703

PATIENT
  Age: 35 Year
  Sex: Male

DRUGS (2)
  1. OXYCONTIN [Suspect]
  2. ROXICODONE [Concomitant]

REACTIONS (5)
  - CHILD ABUSE [None]
  - EUPHORIC MOOD [None]
  - LOSS OF CONSCIOUSNESS [None]
  - MURDER [None]
  - POLYSUBSTANCE ABUSE [None]
